FAERS Safety Report 7815629-8 (Version None)
Quarter: 2011Q4

REPORT INFORMATION
  Report Type: 
  Country: None (occurrence: None)
  Receive Date: 20111014
  Receipt Date: 20111003
  Transmission Date: 20120403
  Serious: Yes (Hospitalization, Other)
  Sender: FDA-Public Use
  Company Number: DE-ELI_LILLY_AND_COMPANY-DE201110001631

PATIENT
  Age: 68 Year
  Sex: Male

DRUGS (2)
  1. BEVACIZUMAB [Concomitant]
     Indication: LUNG ADENOCARCINOMA STAGE IV
     Dosage: 7.5 MG/KG, EVERY THREE WEEKS
  2. PEMETREXED [Suspect]
     Indication: LUNG ADENOCARCINOMA STAGE IV
     Dosage: 500 MG/M2, EVERY THREE WEEKS
     Route: 042

REACTIONS (4)
  - CONSTIPATION [None]
  - PNEUMONITIS [None]
  - ASCITES [None]
  - NEOPLASM MALIGNANT [None]
